FAERS Safety Report 20177059 (Version 1)
Quarter: 2021Q4

REPORT INFORMATION
  Report Type: Spontaneous
  Country: US (occurrence: None)
  Receive Date: 20211213
  Receipt Date: 20211213
  Transmission Date: 20220303
  Serious: Yes (Hospitalization)
  Sender: FDA-Public Use
  Company Number: None

PATIENT
  Age: 58 Year
  Sex: Female

DRUGS (1)
  1. GAMUNEX-C [Suspect]
     Active Substance: HUMAN IMMUNOGLOBULIN G
     Indication: Connective tissue disorder
     Dosage: OTHER QUANTITY : 40/400 GM/ML;?FREQUENCY : EVERY THREE WEEKS; 70 GRAMS EVERY 3 WEEKS?

REACTIONS (4)
  - Therapy interrupted [None]
  - Tachycardia [None]
  - Dyspnoea [None]
  - Loss of personal independence in daily activities [None]

NARRATIVE: CASE EVENT DATE: 20211001
